FAERS Safety Report 9849924 (Version 1)
Quarter: 2014Q1

REPORT INFORMATION
  Report Type: Spontaneous
  Country: DE (occurrence: DE)
  Receive Date: 20140128
  Receipt Date: 20140128
  Transmission Date: 20141002
  Serious: Yes (Other)
  Sender: FDA-Public Use
  Company Number: DE-JNJFOC-20140113097

PATIENT
  Age: 70 Year
  Sex: Female
  Weight: 112 kg

DRUGS (2)
  1. XARELTO [Suspect]
     Indication: CEREBROVASCULAR ACCIDENT PROPHYLAXIS
     Route: 048
     Dates: start: 20130704, end: 20131030
  2. XARELTO [Suspect]
     Indication: ATRIAL FIBRILLATION
     Route: 048
     Dates: start: 20130704, end: 20131030

REACTIONS (3)
  - Scleral haemorrhage [Recovered/Resolved]
  - Rash pustular [Recovered/Resolved]
  - Pruritus generalised [Recovered/Resolved]
